FAERS Safety Report 20557188 (Version 1)
Quarter: 2022Q1

REPORT INFORMATION
  Report Type: Spontaneous
  Country: TW (occurrence: TW)
  Receive Date: 20220307
  Receipt Date: 20220307
  Transmission Date: 20220423
  Serious: Yes (Hospitalization, Other)
  Sender: FDA-Public Use
  Company Number: TW-LEADINGPHARMA-TW-2022LEALIT00038

PATIENT

DRUGS (5)
  1. LORAZEPAM [Suspect]
     Active Substance: LORAZEPAM
     Indication: Insomnia
     Route: 042
  2. TRIHEXYPHENIDYL [Concomitant]
     Active Substance: TRIHEXYPHENIDYL
     Indication: Bipolar disorder
     Route: 065
  3. QUETIAPINE [Concomitant]
     Active Substance: QUETIAPINE
     Indication: Bipolar disorder
     Route: 065
  4. FLUPENTIXOL [Concomitant]
     Active Substance: FLUPENTIXOL
     Indication: Bipolar disorder
     Route: 065
  5. FLUNITRAZEPAM [Concomitant]
     Active Substance: FLUNITRAZEPAM
     Indication: Bipolar disorder
     Route: 065

REACTIONS (2)
  - Delirium [Recovered/Resolved]
  - Product use in unapproved indication [Unknown]
